FAERS Safety Report 25158872 (Version 3)
Quarter: 2025Q4

REPORT INFORMATION
  Report Type: Spontaneous
  Country: BR (occurrence: BR)
  Receive Date: 20250404
  Receipt Date: 20251110
  Transmission Date: 20260117
  Serious: Yes (Death, Other)
  Sender: MUNDIPHARMA EDO
  Company Number: BR-NAPPMUNDI-GBR-2025-0124638

PATIENT
  Sex: Female

DRUGS (26)
  1. REZZAYO [Suspect]
     Active Substance: REZAFUNGIN
     Indication: Systemic candida
     Dosage: RECEIVED THE LOADING DOSE 400 MG (2 VIALS) ONCE
  2. REZZAYO [Suspect]
     Active Substance: REZAFUNGIN
     Dosage: SECOND DOSE 200 MG (1 VIAL) ONCE
  3. MEROPENEM [Concomitant]
     Active Substance: MEROPENEM
     Indication: Product used for unknown indication
     Dosage: 1G FOR INJECTION SOLUTION; 2.00  MILLIGRAM/MINUTE 1 VIAL WITH 1000 MG
     Dates: start: 20250302
  4. LORAZEPAM [Concomitant]
     Active Substance: LORAZEPAM
     Indication: Product used for unknown indication
     Dosage: 2 MILLIGRAM G 1 TABLET IF NECESSARY,  EVERY 8 HOURS
     Route: 065
  5. Hemofol [Concomitant]
     Indication: Product used for unknown indication
     Dosage: INJECTABLE  5000 IU/0.25 ML,  SUBCUTANEOUS 1 AMPOULE 0.25ML
     Route: 058
     Dates: start: 20250302
  6. Hemofol [Concomitant]
     Dosage: INJECTABLE  5000 IU/0.25 ML,  SUBACUTANEOUS 1 AMPOULE  0.25ML SUBCUTANEOUS EVERY 12 HOURS
     Route: 058
     Dates: start: 20250309
  7. FENTANYL CITRATE [Concomitant]
     Active Substance: FENTANYL CITRATE
     Indication: Product used for unknown indication
     Dosage: 50 MCG/ML, 2 ML AMPOULE 3 AMPOULES WITH 2  ML INTRAVENOUSLY, CONTINUOUS USE
  8. SALINE [Concomitant]
     Active Substance: SODIUM CHLORIDE
     Indication: Product used for unknown indication
     Dosage: 94 ML OF 0.9%, INTRAVENOUSLY IN  CONTINUOUS INFUSION PUMP 3  ML/H (WITH FENTANYL)
  9. NPH INSULIN [Concomitant]
     Active Substance: INSULIN BEEF
     Indication: Product used for unknown indication
     Dosage: 100UI/ML, 8 ML 16 UI  SUBCUTANEOUS IN THE MORNING AND  20UI SUBCUTANEOUS AT  NIGH
     Route: 058
  10. NPH INSULIN [Concomitant]
     Active Substance: INSULIN BEEF
     Dosage: 100IU/ML, 10 ML 12 IU  SUBCUTANEOUS, IN THE MORNING  AND 20 IU SUBCUTANEOUS AT NIGHT
     Route: 058
  11. NOREPINEPHRINE [Concomitant]
     Active Substance: NOREPINEPHRINE
     Indication: Product used for unknown indication
     Dosage: 8MG, 4 ML AMPOULE 5 AMP C/4ML  INTRAVENOUS CONTINUOUS USE  NOTE: 05 FA + 180ML
     Route: 065
  12. NOREPINEPHRINE [Concomitant]
     Active Substance: NOREPINEPHRINE
     Dosage: 8 MG, 4 ML  AMPOULE 5 AMP C/4 ML  INTRAVENOUS + 180 ML
     Route: 065
  13. DEXTROSE [Concomitant]
     Active Substance: DEXTROSE MONOHYDRATE
     Indication: Product used for unknown indication
     Dosage: 5% INTRAVENOUS IN CONTINUOUS INFUSION PUMP |-} GLUCOSE  SERUM 5%, 250 ML (WITH NOREPINEPHRINE
     Route: 065
  14. DEXTROSE [Concomitant]
     Active Substance: DEXTROSE MONOHYDRATE
     Dosage: 5%, INTRAVENOUS, IN CONTINUOUS  INFUSION PUMP ? FLOW ACCORDING  TO PHYSICIAN GUIDANCE
     Route: 065
  15. CHLORHEXIDINE [Concomitant]
     Active Substance: CHLORHEXIDINE
     Indication: Product used for unknown indication
     Dosage: 0.12%, 10ML (INDAHEX) 1 VIAL  C/10ML
     Route: 048
     Dates: start: 20250302, end: 202503
  16. CHLORHEXIDINE [Concomitant]
     Active Substance: CHLORHEXIDINE
     Dosage: 0.12%, 10ML (INDAHEX) 1 VIAL  WITH 10ML
     Route: 048
     Dates: start: 20250309
  17. CARBOXYMETHYLCELLULOSE SODIUM [Concomitant]
     Active Substance: CARBOXYMETHYLCELLULOSE SODIUM
     Indication: Product used for unknown indication
     Dosage: 15 ML 1  DROP 3X DAILY
     Route: 047
  18. CARBOXYMETHYLCELLULOSE SODIUM [Concomitant]
     Active Substance: CARBOXYMETHYLCELLULOSE SODIUM
     Dosage: 15 ML 1  DROP 3X DAILY
     Route: 047
  19. PREGABALIN [Concomitant]
     Active Substance: PREGABALIN
     Indication: Product used for unknown indication
     Dosage: N 25MG/ML 60ML  VIAL 2 MILLILITRE
     Route: 048
     Dates: start: 20250302, end: 202503
  20. PREGABALIN [Concomitant]
     Active Substance: PREGABALIN
     Dosage: 25MG/ML BOTTLE  WITH 60ML 2 MILLILITRES ORAL 1X  DAIL
     Route: 048
     Dates: start: 20250309, end: 202503
  21. KETAMIN [Concomitant]
     Active Substance: KETAMINE
     Indication: Product used for unknown indication
     Dosage: NP 50 MG/ML 2 ML VIAL 2  AMPOULES C/2ML INTRAVENOUS  AT THE PHYSICIAN^S DISCRETION 02  FA + 96ML SALINE 0.9%  INTRAVENOUS IN CONTINUOUS INFUSION PUMP 4ML/H
     Route: 065
  22. KETAMIN [Concomitant]
     Active Substance: KETAMINE
     Dosage: NP 50 MG/ML 2 ML VIAL 2  AMPOULES C/2ML INTRAVENOUS  AT THE PHYSICIAN^S DISCRETION 02  FA + 96ML SALINE 0.9%  INTRAVENOUS IN CONTINUOUS  INFUSION PUMP 4ML/H
     Route: 065
  23. TEICOPLANIN [Concomitant]
     Active Substance: TEICOPLANIN
     Indication: Product used for unknown indication
     Dosage: 400 MG, FA 1  VIAL WITH 400MG
  24. RACECADOTRIL [Concomitant]
     Active Substance: RACECADOTRIL
     Indication: Product used for unknown indication
     Dosage: 1 SACHET IF  NECESSARY EVERY 12 HOURS
     Route: 065
     Dates: start: 20250302
  25. VASOPRESSIN [Concomitant]
     Active Substance: VASOPRESSIN
     Indication: Product used for unknown indication
     Dosage: 20 U/ML, 1  ML AMPOULE 1 AMP C/1ML  INTRAVENOUS CONTINUOUS USE  NOTE: 1FA + 99ML SALINE  SOLUTION - START 12ML/H IN  CONTINUOUS INFUSION PUMP
     Route: 065
  26. METHADONE [Concomitant]
     Active Substance: METHADONE HYDROCHLORIDE
     Indication: Product used for unknown indication
     Dosage: 1MG/ML SYRUP 2.5 MILLILITRES IF  NECESSARY
     Route: 065
     Dates: start: 20250309

REACTIONS (1)
  - Cerebrovascular accident [Fatal]

NARRATIVE: CASE EVENT DATE: 20250315
